FAERS Safety Report 22369062 (Version 1)
Quarter: 2023Q2

REPORT INFORMATION
  Report Type: Spontaneous
  Country: US (occurrence: US)
  Receive Date: 20230525
  Receipt Date: 20230525
  Transmission Date: 20230722
  Serious: No
  Sender: FDA-Public Use
  Company Number: US-GILEAD-2023-0629359

PATIENT
  Sex: Female

DRUGS (1)
  1. RANEXA [Suspect]
     Active Substance: RANOLAZINE
     Indication: Product used for unknown indication
     Dosage: 500 MG
     Route: 065

REACTIONS (2)
  - Ventricular extrasystoles [Unknown]
  - Drug hypersensitivity [Not Recovered/Not Resolved]
